FAERS Safety Report 8619273-4 (Version None)
Quarter: 2012Q3

REPORT INFORMATION
  Report Type: 
  Country: None (occurrence: None)
  Receive Date: 20120824
  Receipt Date: 20120816
  Transmission Date: 20120928
  Serious: Yes (Hospitalization)
  Sender: FDA-Public Use
  Company Number: CA-JNJFOC-20120808342

PATIENT
  Sex: Female
  Weight: 31 kg

DRUGS (3)
  1. BENADRYL [Concomitant]
     Indication: PREMEDICATION
     Route: 042
  2. SOLU-CORTEF [Concomitant]
     Indication: PREMEDICATION
     Route: 042
  3. REMICADE [Suspect]
     Indication: CROHN'S DISEASE
     Dosage: 52 WEEKS
     Route: 042
     Dates: start: 20110825

REACTIONS (5)
  - HYPOTENSION [None]
  - PYREXIA [None]
  - VOMITING [None]
  - ABDOMINAL PAIN [None]
  - DIZZINESS [None]
